FAERS Safety Report 8100555-X (Version None)
Quarter: 2012Q1

REPORT INFORMATION
  Report Type: 
  Country: None (occurrence: None)
  Receive Date: 20120129
  Receipt Date: 20111118
  Transmission Date: 20120608
  Serious: No
  Sender: FDA-Public Use
  Company Number: US-ABBOTT-11P-163-0875353-00

PATIENT
  Age: 45 Year
  Sex: Male

DRUGS (5)
  1. HUMIRA [Suspect]
     Indication: CROHN'S DISEASE
  2. LISINOPRIL [Concomitant]
     Indication: HYPERTENSION
  3. LATANOPROST [Concomitant]
     Indication: GLAUCOMA
     Route: 047
  4. HUMIRA [Suspect]
     Indication: PSORIASIS
  5. SIMVASTATIN [Concomitant]
     Indication: BLOOD CHOLESTEROL INCREASED

REACTIONS (1)
  - CROHN'S DISEASE [None]
